FAERS Safety Report 9258017 (Version 2)
Quarter: 2013Q2

REPORT INFORMATION
  Report Type: Spontaneous
  Country: US (occurrence: US)
  Receive Date: 20130426
  Receipt Date: 20130607
  Transmission Date: 20140414
  Serious: No
  Sender: FDA-Public Use
  Company Number: US-VERTEX PHARMACEUTICALS INC.-2013-000868

PATIENT
  Age: 52 Year
  Sex: Female
  Weight: 80 kg

DRUGS (12)
  1. INCIVEK [Suspect]
     Indication: HEPATITIS C
     Dosage: 750 MG, TID
     Route: 048
     Dates: start: 201301
  2. INCIVEK [Suspect]
     Dosage: 750 MG, TID
     Route: 048
     Dates: start: 20130405
  3. PEGASYS [Suspect]
     Indication: HEPATITIS C
     Dosage: 180 ?G, QW
     Route: 058
     Dates: start: 20130405
  4. RIBAVIRIN [Suspect]
     Indication: HEPATITIS C
     Dosage: 600 MG, BID
     Route: 048
     Dates: start: 20130405
  5. NEUPOGEN [Concomitant]
  6. CHLORTALIDONE EUROGENERICS [Concomitant]
  7. CITRUCEL [Concomitant]
  8. LORTAB [Concomitant]
  9. FLEXERIL [Concomitant]
  10. AMLODIPINE [Concomitant]
  11. MOBIC [Concomitant]
  12. ESTRADIOL [Concomitant]

REACTIONS (10)
  - Medication error [Recovered/Resolved]
  - Drug dose omission [Recovered/Resolved]
  - Dyspnoea [Not Recovered/Not Resolved]
  - Dizziness [Not Recovered/Not Resolved]
  - Eye irritation [Not Recovered/Not Resolved]
  - Abdominal pain upper [Recovered/Resolved]
  - Lethargy [Not Recovered/Not Resolved]
  - Vomiting [Recovered/Resolved]
  - Pruritus [Recovered/Resolved]
  - Nausea [Recovered/Resolved]
